FAERS Safety Report 4940096-1 (Version None)
Quarter: 2006Q1

REPORT INFORMATION
  Report Type: 
  Country: None (occurrence: None)
  Receive Date: 20060310
  Receipt Date: 20060303
  Transmission Date: 20060701
  Serious: Yes (Other)
  Sender: FDA-Public Use
  Company Number: US-BRISTOL-MYERS SQUIBB COMPANY-13303482

PATIENT
  Age: 75 Year
  Sex: Female
  Weight: 55 kg

DRUGS (10)
  1. ERBITUX [Suspect]
     Dosage: DOSE HELD ON 03-MAR-2006.
     Route: 042
     Dates: start: 20060224, end: 20060224
  2. ALDACTONE [Concomitant]
  3. ATROPINE [Concomitant]
     Indication: PREMEDICATION
     Route: 058
     Dates: start: 20060224, end: 20060224
  4. BENADRYL [Concomitant]
     Indication: PREMEDICATION
     Route: 042
     Dates: start: 20060224, end: 20060224
  5. CAMPTOSAR [Concomitant]
     Dosage: DOSE HELD ON 03-MAR-2006.
  6. COMPAZINE [Concomitant]
  7. DEXAMETHASONE [Concomitant]
     Indication: PREMEDICATION
     Route: 042
     Dates: start: 20060224, end: 20060224
  8. KYTRIL [Concomitant]
     Indication: PREMEDICATION
     Route: 042
     Dates: start: 20060224, end: 20060224
  9. XELODA [Concomitant]
  10. ZITHROMAX [Concomitant]

REACTIONS (5)
  - ASTHENIA [None]
  - DIARRHOEA [None]
  - JAUNDICE [None]
  - LETHARGY [None]
  - PYREXIA [None]
